FAERS Safety Report 8488019-5 (Version None)
Quarter: 2012Q3

REPORT INFORMATION
  Report Type: 
  Country: None (occurrence: None)
  Receive Date: 20120705
  Receipt Date: 20120702
  Transmission Date: 20120928
  Serious: Yes (Death)
  Sender: FDA-Public Use
  Company Number: PHEH2012US013112

PATIENT
  Sex: Female

DRUGS (3)
  1. RECLAST [Suspect]
     Indication: OSTEOPOROSIS POSTMENOPAUSAL
     Dosage: 5 MG, ONCE ANNUALLY
     Route: 042
  2. RECLAST [Suspect]
     Indication: CHONDROPATHY
  3. RECLAST [Suspect]
     Indication: BONE DISORDER

REACTIONS (1)
  - DEMENTIA [None]
